FAERS Safety Report 5807544-6 (Version None)
Quarter: 2008Q3

REPORT INFORMATION
  Report Type: 
  Country: None (occurrence: None)
  Receive Date: 20080711
  Receipt Date: 20080515
  Transmission Date: 20090109
  Serious: Yes (Other)
  Sender: FDA-Public Use
  Company Number: US-ROCHE-564783

PATIENT

DRUGS (5)
  1. CAPECITABINE [Suspect]
     Indication: METASTATIC RENAL CELL CARCINOMA
     Dosage: DOSGE UNCHANGED FOR 18 PTS, TWO WEEKS ON, ONE WEEK OFF.
     Route: 048
  2. CAPECITABINE [Suspect]
     Dosage: FOR 12 PTS REDUCED TO FINAL DOSE OF 1000MG/M2.
     Route: 048
  3. INTERFERON ALFA [Suspect]
     Indication: METASTATIC RENAL CELL CARCINOMA
     Dosage: DOSAGE REMAINED UNCHANGED THROUGHOUT TREATMENT IN ALL PATIETNTS.
     Route: 058
  4. THALIDOMIDE [Suspect]
     Indication: METASTATIC RENAL CELL CARCINOMA
     Dosage: AT BEDTIME WITHOUT AN INTERRUPTION FOR SEVER DAYS.
     Route: 048
  5. THALIDOMIDE [Suspect]
     Dosage: AT BEDTIME. 22 PTS REMAINED ON 400 MG DOSAGE, 8 PTS HAD DOSE REDUCTIONS TO 300 MG, 200 MG OR 100 MG.
     Route: 048

REACTIONS (8)
  - ANAEMIA [None]
  - CONSTIPATION [None]
  - DEEP VEIN THROMBOSIS [None]
  - FATIGUE [None]
  - LEUKOPENIA [None]
  - MUSCULOSKELETAL PAIN [None]
  - PALMAR-PLANTAR ERYTHRODYSAESTHESIA SYNDROME [None]
  - PARAESTHESIA [None]
